FAERS Safety Report 7314987-0 (Version None)
Quarter: 2011Q1

REPORT INFORMATION
  Report Type: 
  Country: None (occurrence: None)
  Receive Date: 20110225
  Receipt Date: 20100408
  Transmission Date: 20110831
  Serious: No
  Sender: FDA-Public Use
  Company Number: US-MYLANLABS-2010S1003342

PATIENT
  Age: 18 Year
  Sex: Male
  Weight: 77.11 kg

DRUGS (1)
  1. AMNESTEEM [Suspect]
     Indication: ACNE CYSTIC
     Route: 048
     Dates: start: 20100127, end: 20100225

REACTIONS (2)
  - FATIGUE [None]
  - NAUSEA [None]
